FAERS Safety Report 8217889-0 (Version None)
Quarter: 2012Q1

REPORT INFORMATION
  Report Type: 
  Country: None (occurrence: None)
  Receive Date: 20120319
  Receipt Date: 20120309
  Transmission Date: 20120608
  Serious: Yes (Hospitalization, Other)
  Sender: FDA-Public Use
  Company Number: US-AMGEN-USASP2011060719

PATIENT
  Age: 75 Year
  Sex: Female
  Weight: 61.451 kg

DRUGS (5)
  1. PROLIA [Suspect]
     Indication: OSTEOPOROSIS POSTMENOPAUSAL
     Dosage: 60 MG, Q6MO
     Route: 030
     Dates: start: 20110101, end: 20120101
  2. DIOVAN [Concomitant]
     Dosage: 160 MG, UNK
     Dates: start: 20111114
  3. TRIAMCINOLONE [Concomitant]
     Dosage: 0.1 %, UNK
     Dates: start: 20110701, end: 20110921
  4. DIOVAN [Concomitant]
     Dosage: 160/12.5 UNK, UNK
     Dates: end: 20111114
  5. NIACIN [Concomitant]
     Indication: BLOOD CHOLESTEROL
     Dosage: 500 MG, UNK
     Route: 048

REACTIONS (13)
  - CELLULITIS [None]
  - ACUTE GENERALISED EXANTHEMATOUS PUSTULOSIS [None]
  - ERYTHEMA [None]
  - RASH GENERALISED [None]
  - RASH ERYTHEMATOUS [None]
  - ERYTHEMA MULTIFORME [None]
  - VOMITING [None]
  - DRUG HYPERSENSITIVITY [None]
  - LOCAL SWELLING [None]
  - CONFUSIONAL STATE [None]
  - ASTHENIA [None]
  - HYPONATRAEMIA [None]
  - RASH PRURITIC [None]
